FAERS Safety Report 13578318 (Version 2)
Quarter: 2017Q2

REPORT INFORMATION
  Report Type: Report from Study
  Country: IL (occurrence: IL)
  Receive Date: 20170524
  Receipt Date: 20170605
  Transmission Date: 20170830
  Serious: Yes (Other)
  Sender: FDA-Public Use
  Company Number: IL-BAYER-2017-026834

PATIENT
  Sex: Female

DRUGS (3)
  1. CLEXANE [Concomitant]
     Active Substance: ENOXAPARIN SODIUM
     Indication: PROPHYLAXIS
  2. ASPIRIN. [Suspect]
     Active Substance: ASPIRIN
     Indication: PROPHYLAXIS
  3. BETAFERON [Suspect]
     Active Substance: INTERFERON BETA-1B
     Indication: MULTIPLE SCLEROSIS
     Dosage: UNK
     Dates: start: 20060221, end: 2016

REACTIONS (7)
  - Caesarean section [None]
  - Underdose [None]
  - Maternal exposure before pregnancy [None]
  - Inappropriate schedule of drug administration [None]
  - Contraindicated product administered [None]
  - Maternal exposure during pregnancy [None]
  - Labelled drug-drug interaction medication error [None]

NARRATIVE: CASE EVENT DATE: 201702
